FAERS Safety Report 7651268-X (Version None)
Quarter: 2011Q3

REPORT INFORMATION
  Report Type: 
  Country: None (occurrence: None)
  Receive Date: 20110802
  Receipt Date: 20110729
  Transmission Date: 20111222
  Serious: Yes (Other)
  Sender: FDA-Public Use
  Company Number: JP-EISAI INC-E2020-09509-SPO-JP

PATIENT
  Age: 58 Year
  Sex: Female

DRUGS (3)
  1. ARICEPT [Suspect]
     Indication: DEMENTIA ALZHEIMER'S TYPE
     Route: 048
     Dates: start: 20110613, end: 20110626
  2. ARICEPT [Suspect]
     Route: 048
     Dates: start: 20110627, end: 20110709
  3. ZYPREXA [Concomitant]
     Indication: DELUSION
     Route: 048
     Dates: start: 20110613, end: 20110704

REACTIONS (1)
  - NEUROLEPTIC MALIGNANT SYNDROME [None]
